FAERS Safety Report 9831090 (Version 1)
Quarter: 2014Q1

REPORT INFORMATION
  Report Type: Spontaneous
  Country: DE (occurrence: DE)
  Receive Date: 20140120
  Receipt Date: 20140120
  Transmission Date: 20141002
  Serious: Yes (Other)
  Sender: FDA-Public Use
  Company Number: DE-MYLANLABS-2014S1000449

PATIENT
  Age: 60 Year
  Sex: Female

DRUGS (1)
  1. BISOPROLOL DURA [Suspect]
     Indication: HYPERTENSION

REACTIONS (2)
  - Myositis [Unknown]
  - Arthritis [Unknown]
